FAERS Safety Report 23056194 (Version 1)
Quarter: 2023Q4

REPORT INFORMATION
  Report Type: Spontaneous
  Country: US (occurrence: None)
  Receive Date: 20231011
  Receipt Date: 20231011
  Transmission Date: 20240109
  Serious: Yes (Disabling)
  Sender: FDA-Public Use
  Company Number: None

PATIENT
  Age: 78 Year
  Sex: Female
  Weight: 61.23 kg

DRUGS (1)
  1. ALENDRONATE SODIUM [Suspect]
     Active Substance: ALENDRONATE SODIUM
     Indication: Osteoporosis
     Dosage: OTHER QUANTITY : 4 PILLS/BOX ;?
     Route: 048
     Dates: start: 20230819, end: 20230909

REACTIONS (9)
  - Urticaria [None]
  - Lip swelling [None]
  - Throat irritation [None]
  - Skin discolouration [None]
  - Sinus congestion [None]
  - Paraesthesia [None]
  - Paraesthesia [None]
  - Varicose vein [None]
  - Skin exfoliation [None]

NARRATIVE: CASE EVENT DATE: 20230819
